FAERS Safety Report 4894479-9 (Version None)
Quarter: 2006Q1

REPORT INFORMATION
  Report Type: 
  Country: None (occurrence: None)
  Receive Date: 20060127
  Receipt Date: 20060116
  Transmission Date: 20060701
  Serious: Yes (Hospitalization, Other)
  Sender: FDA-Public Use
  Company Number: GB-NOVOPROD-250066

PATIENT
  Age: 61 Year
  Sex: Female
  Weight: 91 kg

DRUGS (7)
  1. INSULIN DETEMIR FLEXPEN [Suspect]
     Indication: INSULIN-REQUIRING TYPE II DIABETES MELLITUS
     Dosage: 2 U, QD
     Route: 058
     Dates: start: 20050922
  2. INSULIN DETEMIR FLEXPEN [Suspect]
     Dosage: 2 UNK, UNK
     Dates: start: 20051216
  3. DICLOFENAC [Concomitant]
     Dosage: 100 MG, QD
     Route: 048
     Dates: start: 20050101
  4. ADALAT [Concomitant]
     Dosage: 40 MG, QD
     Route: 048
     Dates: start: 19970101
  5. GLICLAZIDE [Concomitant]
     Dosage: 320 MG, QD
     Route: 048
     Dates: start: 19980101
  6. TEMAZEPAM [Concomitant]
     Dosage: 20 MG, QD
     Route: 048
     Dates: start: 19960101
  7. FLUOXETINE [Concomitant]
     Dosage: 20 MG, QD
     Route: 048
     Dates: start: 20050909

REACTIONS (4)
  - CONFUSIONAL STATE [None]
  - DEHYDRATION [None]
  - HYPOGLYCAEMIA [None]
  - LOSS OF CONSCIOUSNESS [None]
